FAERS Safety Report 8463086-3 (Version None)
Quarter: 2012Q2

REPORT INFORMATION
  Report Type: 
  Country: None (occurrence: None)
  Receive Date: 20120625
  Receipt Date: 20120619
  Transmission Date: 20120825
  Serious: Yes (Other)
  Sender: FDA-Public Use
  Company Number: PHHY2012BR053420

PATIENT
  Sex: Male

DRUGS (7)
  1. CYCLOSPORINE [Suspect]
     Indication: HEART TRANSPLANT
     Dosage: 1 DF, BID
     Route: 048
     Dates: start: 20050101
  2. CORTICOSTEROID NOS [Concomitant]
     Dosage: UNK UKN, UNK
     Dates: start: 20050101
  3. SIMVASTATIN [Concomitant]
     Dosage: 1 DF, BID
     Route: 048
  4. LASIX [Concomitant]
     Dosage: 2 DF, BID
     Route: 048
  5. DILTIAZEM HYDROCHOLORIDE [Concomitant]
     Dosage: 3 DF, UNK
  6. MYFORTIC [Suspect]
     Indication: HEART TRANSPLANT
     Dosage: 2 DF, BID
     Route: 048
     Dates: start: 20050101
  7. ATORVASTATIN CALCIUM [Concomitant]
     Dosage: 2 DF, DAILY

REACTIONS (9)
  - AORTIC INJURY [None]
  - DIABETES MELLITUS [None]
  - GRAFT HAEMORRHAGE [None]
  - OBESITY [None]
  - RENAL FAILURE [None]
  - PLATELET COUNT INCREASED [None]
  - WEIGHT INCREASED [None]
  - BLOOD CREATINE INCREASED [None]
  - BLOOD CHOLESTEROL INCREASED [None]
